FAERS Safety Report 22349694 (Version 1)
Quarter: 2023Q2

REPORT INFORMATION
  Report Type: Spontaneous
  Country: US (occurrence: US)
  Receive Date: 20230522
  Receipt Date: 20230522
  Transmission Date: 20230722
  Serious: Yes (Disabling, Other)
  Sender: FDA-Public Use
  Company Number: US-REGENERON PHARMACEUTICALS, INC.-2023-067617

PATIENT
  Sex: Male

DRUGS (3)
  1. EYLEA [Suspect]
     Active Substance: AFLIBERCEPT
     Indication: Macular degeneration
     Dosage: AROUND 6 YEARS AGO, BILATERALLY
     Dates: start: 2017
  2. EYLEA [Suspect]
     Active Substance: AFLIBERCEPT
     Dosage: UNK; ONE EYE
     Dates: start: 202210, end: 202210
  3. EYLEA [Suspect]
     Active Substance: AFLIBERCEPT
     Dosage: UNK; ONE EYE
     Dates: start: 202210, end: 202210

REACTIONS (4)
  - Blindness unilateral [Unknown]
  - Endophthalmitis [Recovering/Resolving]
  - Inadequate aseptic technique in use of product [Unknown]
  - Eye pain [Unknown]

NARRATIVE: CASE EVENT DATE: 20221001
